FAERS Safety Report 5895996-5 (Version None)
Quarter: 2008Q3

REPORT INFORMATION
  Report Type: 
  Country: None (occurrence: None)
  Receive Date: 20080924
  Receipt Date: 20080916
  Transmission Date: 20090109
  Serious: Yes (Hospitalization)
  Sender: FDA-Public Use
  Company Number: US-GILEAD-2008-0017845

PATIENT
  Sex: Male
  Weight: 84.1 kg

DRUGS (13)
  1. AMBRISENTAN [Suspect]
     Indication: PULMONARY ARTERIAL HYPERTENSION
     Route: 048
     Dates: start: 20070619
  2. AMBRISENTAN [Suspect]
     Dates: start: 20070309, end: 20070618
  3. SILDENAFIL CITRATE [Concomitant]
     Route: 048
     Dates: start: 20071019
  4. DIGOXIN [Concomitant]
  5. SPIRONOLACTONE [Concomitant]
     Route: 048
  6. ALBUTEROL [Concomitant]
     Route: 055
  7. EPOTEIN ALFA [Concomitant]
     Dosage: 23,000 UNITS
     Route: 042
  8. LEVOTHYROXINE SODIUM [Concomitant]
     Route: 048
  9. ALLOPURINOL [Concomitant]
     Route: 048
  10. PREDNISONE [Concomitant]
  11. TUMS [Concomitant]
  12. PROTONIX [Concomitant]
  13. DIALYVITE [Concomitant]

REACTIONS (1)
  - HYPERKALAEMIA [None]
